FAERS Safety Report 24220628 (Version 1)
Quarter: 2024Q3

REPORT INFORMATION
  Report Type: Spontaneous
  Country: SE (occurrence: SE)
  Receive Date: 20240818
  Receipt Date: 20240818
  Transmission Date: 20241017
  Serious: Yes (Other)
  Sender: TEVA
  Company Number: None

PATIENT
  Age: 48 Year
  Sex: Female

DRUGS (11)
  1. ATOMOXETINE [Suspect]
     Active Substance: ATOMOXETINE HYDROCHLORIDE
     Indication: Product used for unknown indication
     Route: 065
     Dates: start: 20240522, end: 20240704
  2. PARAFLEX [Concomitant]
     Active Substance: CHLORZOXAZONE
     Indication: Product used for unknown indication
     Dosage: TIME INTERVAL: AS NECESSARY: 1 TABLET AS NEEDED, MAXIMUM 4 TABLETS PER DAY.
     Route: 065
     Dates: start: 20230621
  3. BLISSEL [Concomitant]
     Indication: Product used for unknown indication
     Route: 065
     Dates: start: 20231113
  4. DIENOGEST\ETHINYL ESTRADIOL [Concomitant]
     Active Substance: DIENOGEST\ETHINYL ESTRADIOL
     Indication: Product used for unknown indication
     Dosage: WHITE TABLETS ONLY. IN CASE OF BLEEDING, TAKE A 4-DAY BREAK.
     Route: 065
     Dates: start: 20240314
  5. DROSPIRENONE [Concomitant]
     Active Substance: DROSPIRENONE
     Indication: Product used for unknown indication
     Route: 065
     Dates: start: 20231114
  6. DROSPIRENONE [Concomitant]
     Active Substance: DROSPIRENONE
     Indication: Product used for unknown indication
     Route: 065
     Dates: start: 20240411
  7. BACLOFEN [Concomitant]
     Active Substance: BACLOFEN
     Indication: Product used for unknown indication
     Route: 065
     Dates: start: 20231204
  8. PRIMPERAN [Concomitant]
     Active Substance: METOCLOPRAMIDE HYDROCHLORIDE
     Indication: Product used for unknown indication
     Dosage: TIME INTERVAL: AS NECESSARY
     Route: 065
  9. Aritonin [Concomitant]
     Indication: Product used for unknown indication
     Dosage: 1-2 TABLETS AT 9PM
     Route: 065
     Dates: start: 20230202
  10. PROMETHAZINE HYDROCHLORIDE\THIOUREA [Concomitant]
     Active Substance: PROMETHAZINE HYDROCHLORIDE\THIOUREA
     Indication: Product used for unknown indication
     Dosage: TIME INTERVAL: AS NECESSARY: 2-4 TABLETS AS NEEDED, MAXIMUM 10 TABLETS PER DAY: LERGIGAN MITE
     Route: 065
     Dates: start: 20220701
  11. ESOMEPRAZOLE [Concomitant]
     Active Substance: ESOMEPRAZOLE
     Indication: Product used for unknown indication
     Route: 065
     Dates: start: 20220315

REACTIONS (7)
  - Aggression [Unknown]
  - Anxiety [Unknown]
  - Emotional poverty [Unknown]
  - Heart rate increased [Unknown]
  - Fatigue [Unknown]
  - Hypotension [Unknown]
  - Executive dysfunction [Unknown]

NARRATIVE: CASE EVENT DATE: 20240101
